FAERS Safety Report 25520753 (Version 1)
Quarter: 2025Q3

REPORT INFORMATION
  Report Type: Spontaneous
  Country: JP (occurrence: JP)
  Receive Date: 20250705
  Receipt Date: 20250705
  Transmission Date: 20251021
  Serious: Yes (Hospitalization, Other)
  Sender: INDICUS PHARMA LLC
  Company Number: JP-Indicus Pharma-001082

PATIENT
  Age: 6 Decade
  Sex: Female

DRUGS (5)
  1. METFORMIN [Suspect]
     Active Substance: METFORMIN HYDROCHLORIDE
     Indication: Type 2 diabetes mellitus
     Route: 048
  2. SITAGLIPTIN [Concomitant]
     Active Substance: SITAGLIPTIN
     Indication: Type 2 diabetes mellitus
     Route: 048
  3. EMPAGLIFLOZIN [Concomitant]
     Active Substance: EMPAGLIFLOZIN
     Indication: Type 2 diabetes mellitus
     Route: 048
  4. FUROSEMIDE [Concomitant]
     Active Substance: FUROSEMIDE
     Indication: Diuretic therapy
  5. INDAPAMIDE [Concomitant]
     Active Substance: INDAPAMIDE
     Indication: Diuretic therapy

REACTIONS (2)
  - Lactic acidosis [Recovered/Resolved]
  - Euglycaemic diabetic ketoacidosis [Recovered/Resolved]
